FAERS Safety Report 13836444 (Version 2)
Quarter: 2017Q3

REPORT INFORMATION
  Report Type: Report from Study
  Country: RU (occurrence: RU)
  Receive Date: 20170804
  Receipt Date: 20170824
  Transmission Date: 20171127
  Serious: No
  Sender: FDA-Public Use
  Company Number: RU-ALLERGAN-1733186US

PATIENT
  Age: 17 Year
  Sex: Female
  Weight: 59 kg

DRUGS (8)
  1. QUETIAPINE. [Concomitant]
     Active Substance: QUETIAPINE
     Dosage: 400 MG, QD
     Route: 048
     Dates: start: 20170418, end: 20170418
  2. CARIPRAZINE HCL - BP [Suspect]
     Active Substance: CARIPRAZINE
     Indication: SCHIZOAFFECTIVE DISORDER
     Dosage: 1.5 MG, QD
     Route: 048
     Dates: start: 20170420, end: 20170515
  3. CARIPRAZINE HCL - BP [Suspect]
     Active Substance: CARIPRAZINE
     Dosage: 0.5 MG, QD
     Route: 048
     Dates: start: 20170418, end: 20170418
  4. QUETIAPINE. [Concomitant]
     Active Substance: QUETIAPINE
     Dosage: 300 MG, QD
     Route: 048
     Dates: start: 20170419, end: 20170419
  5. QUETIAPINE. [Concomitant]
     Active Substance: QUETIAPINE
     Dosage: 100 MG, QD
     Route: 048
     Dates: start: 20170421, end: 20170421
  6. CARIPRAZINE HCL - BP [Suspect]
     Active Substance: CARIPRAZINE
     Dosage: 1 MG, QD
     Route: 048
     Dates: start: 20170419, end: 20170419
  7. QUETIAPINE. [Concomitant]
     Active Substance: QUETIAPINE
     Indication: SCHIZOAFFECTIVE DISORDER
     Dosage: 500 MG, QD
     Route: 048
     Dates: start: 20161116, end: 20170417
  8. QUETIAPINE. [Concomitant]
     Active Substance: QUETIAPINE
     Dosage: 200 MG, QD
     Route: 048
     Dates: start: 20170420, end: 20170420

REACTIONS (2)
  - Accommodation disorder [Recovered/Resolved]
  - Sedation [Recovered/Resolved]

NARRATIVE: CASE EVENT DATE: 20170418
